FAERS Safety Report 9724994 (Version 1)
Quarter: 2013Q4

REPORT INFORMATION
  Report Type: Report from Study
  Country: US (occurrence: US)
  Receive Date: 20131202
  Receipt Date: 20131202
  Transmission Date: 20140711
  Serious: Yes (Other)
  Sender: FDA-Public Use
  Company Number: US-ROCHE-1308189

PATIENT
  Sex: Male

DRUGS (4)
  1. NUTROPIN [Suspect]
     Indication: BODY HEIGHT BELOW NORMAL
     Route: 058
  2. HYDROCORTISONE CREAM [Concomitant]
     Dosage: APPLY TOPICALY. FREQUENCY IS AS NEEDED.
     Route: 061
  3. INFLIXIMAB [Concomitant]
     Route: 042
  4. FLAGYL [Concomitant]
     Route: 048

REACTIONS (2)
  - Epiphyses delayed fusion [Unknown]
  - Crohn^s disease [Unknown]
